FAERS Safety Report 5980205-9 (Version None)
Quarter: 2008Q4

REPORT INFORMATION
  Report Type: 
  Country: None (occurrence: None)
  Receive Date: 20081205
  Receipt Date: 20081201
  Transmission Date: 20090506
  Serious: Yes (Hospitalization)
  Sender: FDA-Public Use
  Company Number: GB-ROCHE-589090

PATIENT
  Sex: Female
  Weight: 101.6 kg

DRUGS (3)
  1. ORLISTAT [Suspect]
     Indication: OBESITY
     Route: 048
     Dates: start: 20080721
  2. ARTHROTEC [Concomitant]
     Indication: ANTIINFLAMMATORY THERAPY
     Dosage: REPORTED INDICATION ALSO ARTHRITIS PAIN. 2 TABLETS, TWICE DAILY AS REQUIRED.
     Route: 048
     Dates: start: 20080721
  3. ACETAMINOPHEN [Concomitant]
     Indication: ARTHRITIS
     Dosage: 500MG, 4 TIMES DAILY, WHEN REQUIRED
     Route: 048
     Dates: start: 20080721

REACTIONS (2)
  - POLYP [None]
  - POSTMENOPAUSAL HAEMORRHAGE [None]
